FAERS Safety Report 16011842 (Version 2)
Quarter: 2019Q1

REPORT INFORMATION
  Report Type: Report from Study
  Country: FR (occurrence: FR)
  Receive Date: 20190227
  Receipt Date: 20190322
  Transmission Date: 20190418
  Serious: Yes (Death, Hospitalization)
  Sender: FDA-Public Use
  Company Number: FR-ACTELION-A-CH2018-168313

PATIENT
  Age: 80 Year
  Sex: Female
  Weight: 65 kg

DRUGS (10)
  1. UPTRAVI [Suspect]
     Active Substance: SELEXIPAG
     Dosage: 600 ?G, BID
     Route: 048
     Dates: start: 20180312
  2. UPTRAVI [Suspect]
     Active Substance: SELEXIPAG
     Dosage: 1000 ?G, BID
     Route: 048
     Dates: start: 20180514
  3. UPTRAVI [Suspect]
     Active Substance: SELEXIPAG
     Dosage: 1000 ?G, BID
     Route: 048
     Dates: start: 20180402
  4. TADALAFIL. [Concomitant]
     Active Substance: TADALAFIL
  5. UPTRAVI [Suspect]
     Active Substance: SELEXIPAG
     Indication: PULMONARY ARTERIAL HYPERTENSION
     Dosage: 400 ?G, BID
     Route: 048
     Dates: start: 20180219
  6. UPTRAVI [Suspect]
     Active Substance: SELEXIPAG
     Dosage: 1200 ?G, BID
     Route: 048
     Dates: start: 20180522
  7. UPTRAVI [Suspect]
     Active Substance: SELEXIPAG
     Dosage: 200 ?G, BID
     Route: 048
     Dates: start: 20180212
  8. UPTRAVI [Suspect]
     Active Substance: SELEXIPAG
     Dosage: 800 ?G, BID
     Route: 048
     Dates: start: 20180321
  9. UPTRAVI [Suspect]
     Active Substance: SELEXIPAG
     Dosage: 1200 ?G, BID
     Route: 048
     Dates: start: 20180422
  10. BOSENTAN. [Concomitant]
     Active Substance: BOSENTAN
     Indication: PULMONARY ARTERIAL HYPERTENSION

REACTIONS (16)
  - Metastases to peritoneum [Fatal]
  - Constipation [Not Recovered/Not Resolved]
  - Dyspnoea [Recovering/Resolving]
  - Flushing [Not Recovered/Not Resolved]
  - Headache [Not Recovered/Not Resolved]
  - Pyelonephritis acute [Unknown]
  - Myalgia [Not Recovered/Not Resolved]
  - Nausea [Recovered/Resolved]
  - Fatigue [Not Recovered/Not Resolved]
  - Respiratory disorder [Fatal]
  - Erythema [Not Recovered/Not Resolved]
  - Product supply issue [Unknown]
  - Adnexa uteri mass [Fatal]
  - Pleural effusion [Not Recovered/Not Resolved]
  - Tumour compression [Fatal]
  - Diarrhoea [Recovered/Resolved]

NARRATIVE: CASE EVENT DATE: 20180220
